FAERS Safety Report 7430963-1 (Version None)
Quarter: 2011Q2

REPORT INFORMATION
  Report Type: 
  Country: None (occurrence: None)
  Receive Date: 20110421
  Receipt Date: 20110413
  Transmission Date: 20111010
  Serious: Yes (Other)
  Sender: FDA-Public Use
  Company Number: PHHY2010TR88147

PATIENT
  Age: 33 Year
  Sex: Female

DRUGS (2)
  1. ORNIDAZOLE [Suspect]
     Indication: VAGINAL INFECTION
     Dosage: 500 MG, BID
  2. DOXYCYCLINE [Suspect]
     Indication: VAGINAL INFECTION
     Dosage: 500 MG, UNK

REACTIONS (6)
  - ABDOMINAL PAIN [None]
  - ABDOMINAL PAIN UPPER [None]
  - GASTROINTESTINAL SOUNDS ABNORMAL [None]
  - HAEMOGLOBIN DECREASED [None]
  - PANCREATITIS ACUTE [None]
  - NAUSEA [None]
